FAERS Safety Report 8369504-3 (Version None)
Quarter: 2012Q2

REPORT INFORMATION
  Report Type: 
  Country: None (occurrence: None)
  Receive Date: 20120517
  Receipt Date: 20120517
  Transmission Date: 20120825
  Serious: Yes (Other)
  Sender: FDA-Public Use
  Company Number: None

PATIENT
  Age: 50 Year
  Sex: Female
  Weight: 61.6892 kg

DRUGS (1)
  1. AMITIZA [Suspect]
     Indication: BOWEL MOVEMENT IRREGULARITY
     Dosage: 8 MCG 2X DAY ORAL
     Route: 048
     Dates: start: 20120410, end: 20120426

REACTIONS (5)
  - ANXIETY [None]
  - MOOD ALTERED [None]
  - CONDITION AGGRAVATED [None]
  - MENTAL DISORDER [None]
  - MAJOR DEPRESSION [None]
